FAERS Safety Report 22178994 (Version 1)
Quarter: 2023Q2

REPORT INFORMATION
  Report Type: Spontaneous
  Country: CN (occurrence: CN)
  Receive Date: 20230406
  Receipt Date: 20230406
  Transmission Date: 20230721
  Serious: Yes (Other)
  Sender: FDA-Public Use
  Company Number: None

PATIENT
  Age: 51 Year
  Sex: Female
  Weight: 60 kg

DRUGS (2)
  1. CYCLOPHOSPHAMIDE [Suspect]
     Active Substance: CYCLOPHOSPHAMIDE
     Indication: Adenocarcinoma
     Dosage: 1G, QD, D1 DILUTED WITH 0.9% SODIUM CHLORIDE 50 ML
     Route: 041
     Dates: start: 20230302, end: 20230302
  2. SODIUM CHLORIDE [Suspect]
     Active Substance: SODIUM CHLORIDE
     Indication: Vehicle solution use
     Dosage: 50 ML, QD, D1 USED TO DILUTE 1 G CYCLOPHOSPHAMIDE
     Route: 041
     Dates: start: 20230302, end: 20230302

REACTIONS (1)
  - Myelosuppression [Recovering/Resolving]

NARRATIVE: CASE EVENT DATE: 20230322
